FAERS Safety Report 5652538-7 (Version None)
Quarter: 2008Q1

REPORT INFORMATION
  Report Type: 
  Country: None (occurrence: None)
  Receive Date: 20080305
  Receipt Date: 20080305
  Transmission Date: 20080703
  Serious: No
  Sender: FDA-Public Use
  Company Number: None

PATIENT
  Age: 27 Year
  Sex: Female
  Weight: 61.2356 kg

DRUGS (2)
  1. CHANTIX [Suspect]
     Indication: SMOKING CESSATION THERAPY
     Dosage: 0.5 MG 1X + 2X DAY PO
     Route: 048
     Dates: start: 20080225, end: 20080302
  2. CHANTIX [Suspect]
     Indication: SMOKING CESSATION THERAPY
     Dosage: 1 MG 2X DAY PO
     Route: 048
     Dates: start: 20080303, end: 20080304

REACTIONS (4)
  - ANXIETY [None]
  - CONFUSIONAL STATE [None]
  - FEELING ABNORMAL [None]
  - PANIC REACTION [None]
